FAERS Safety Report 7355488-3 (Version None)
Quarter: 2011Q1

REPORT INFORMATION
  Report Type: 
  Country: None (occurrence: None)
  Receive Date: 20110316
  Receipt Date: 20110309
  Transmission Date: 20110831
  Serious: Yes (Hospitalization)
  Sender: FDA-Public Use
  Company Number: A0887883A

PATIENT
  Age: 61 Year
  Sex: Male

DRUGS (10)
  1. REQUIP [Suspect]
     Indication: RESTLESS LEGS SYNDROME
     Dosage: 1MG THREE TIMES PER DAY
     Route: 048
     Dates: start: 20040101
  2. MORPHINE [Suspect]
  3. LISINOPRIL [Concomitant]
  4. ROPINIROLE [Suspect]
     Indication: RESTLESS LEGS SYNDROME
     Dosage: 1MG THREE TIMES PER DAY
     Route: 048
     Dates: start: 20091001, end: 20100621
  5. SOTALOL HYDROCHLORIDE [Concomitant]
  6. ANTIHYPERTENSIVE [Suspect]
     Indication: HYPERTENSION
     Dates: start: 20100101
  7. SINEMET [Suspect]
     Indication: RESTLESS LEGS SYNDROME
  8. COUMADIN [Concomitant]
  9. BETAPACE [Concomitant]
  10. METFORMIN HCL [Concomitant]

REACTIONS (10)
  - DIARRHOEA [None]
  - DRUG INEFFECTIVE [None]
  - TREMOR [None]
  - RESTLESS LEGS SYNDROME [None]
  - CHOLECYSTECTOMY [None]
  - ADVERSE DRUG REACTION [None]
  - PRODUCT QUALITY ISSUE [None]
  - THERAPEUTIC RESPONSE DECREASED [None]
  - URTICARIA [None]
  - PARAESTHESIA [None]
